FAERS Safety Report 5919368-X (Version None)
Quarter: 2008Q4

REPORT INFORMATION
  Report Type: 
  Country: None (occurrence: None)
  Receive Date: 20081015
  Receipt Date: 20081010
  Transmission Date: 20090506
  Serious: Yes (Life-Threatening, Hospitalization)
  Sender: FDA-Public Use
  Company Number: B0523247A

PATIENT
  Age: 22 Year
  Sex: Male

DRUGS (19)
  1. FLOLAN [Suspect]
     Indication: PULMONARY ARTERIAL HYPERTENSION
     Route: 042
     Dates: start: 20040531
  2. FUROSEMIDE [Concomitant]
     Route: 048
     Dates: start: 20041016
  3. CEFAMEZIN [Concomitant]
     Dates: start: 20040930, end: 20041022
  4. AMIKACIN SULFATE [Concomitant]
     Dates: start: 20041006, end: 20041015
  5. SPIRONOLACTONE [Concomitant]
     Route: 048
  6. FLUITRAN [Concomitant]
     Route: 048
  7. HALCION [Concomitant]
     Route: 048
  8. MODACIN [Concomitant]
     Route: 042
     Dates: start: 20061215, end: 20061220
  9. DALACIN [Concomitant]
     Dates: start: 20061215, end: 20061220
  10. MEROPEN [Concomitant]
     Route: 042
     Dates: start: 20061220, end: 20061225
  11. MINOCYCLINE HCL [Concomitant]
     Route: 042
     Dates: start: 20061220, end: 20061225
  12. POTASSIUM CHLORIDE [Concomitant]
     Route: 042
     Dates: start: 20061220, end: 20061225
  13. ASPARA K [Concomitant]
     Route: 048
     Dates: start: 20061225
  14. CRAVIT [Concomitant]
     Route: 048
     Dates: start: 20061226, end: 20070101
  15. TRACLEER [Concomitant]
     Route: 048
  16. CLARITHROMYCIN [Concomitant]
     Route: 048
  17. ASPARA POTASSIUM [Concomitant]
     Route: 048
  18. LANSOPRAZOLE [Concomitant]
     Route: 048
  19. MUCOSTA [Concomitant]
     Route: 048

REACTIONS (7)
  - AUTOIMMUNE THYROIDITIS [None]
  - BRAIN NATRIURETIC PEPTIDE INCREASED [None]
  - CARDIAC FAILURE [None]
  - CATHETER RELATED INFECTION [None]
  - DYSPNOEA EXERTIONAL [None]
  - PNEUMONIA [None]
  - PULMONARY HAEMORRHAGE [None]
